FAERS Safety Report 6333605-1 (Version None)
Quarter: 2009Q3

REPORT INFORMATION
  Report Type: 
  Country: None (occurrence: None)
  Receive Date: 20090829
  Receipt Date: 20090622
  Transmission Date: 20100115
  Serious: No
  Sender: FDA-Public Use
  Company Number: US-ABBOTT-09P-163-0500266-00

PATIENT
  Sex: Female
  Weight: 90.8 kg

DRUGS (7)
  1. SIMCOR [Suspect]
     Indication: BLOOD CHOLESTEROL INCREASED
     Dosage: 500/20 MG
     Dates: start: 20081101, end: 20090401
  2. METOPROLOL TARTRATE [Concomitant]
     Indication: ARRHYTHMIA
     Route: 048
  3. LISINOPRIL [Concomitant]
     Indication: HYPERTENSION
     Route: 048
  4. CYMBALTA [Concomitant]
     Indication: DEPRESSION
     Route: 048
  5. CYMBALTA [Concomitant]
     Indication: ANXIETY
  6. FLEXERIL [Concomitant]
     Indication: FIBROMYALGIA
     Route: 048
  7. IBUPROFIN [Concomitant]
     Indication: FIBROMYALGIA
     Route: 048

REACTIONS (3)
  - ERYTHEMA [None]
  - RASH MACULAR [None]
  - SKIN BURNING SENSATION [None]
